FAERS Safety Report 4735280-6 (Version None)
Quarter: 2005Q3

REPORT INFORMATION
  Report Type: 
  Country: None (occurrence: None)
  Receive Date: 20050803
  Receipt Date: 20050721
  Transmission Date: 20060218
  Serious: Yes (Hospitalization)
  Sender: FDA-Public Use
  Company Number: HQWYE361921JUL05

PATIENT
  Age: 69 Year
  Sex: Male
  Weight: 94.1 kg

DRUGS (9)
  1. RAPAMUNE [Suspect]
     Indication: PROPHYLAXIS AGAINST TRANSPLANT REJECTION
     Dosage: 3 MG 1X PER 1 DAY, ORAL
     Route: 048
     Dates: start: 20040613
  2. NEORAL [Suspect]
     Indication: PROPHYLAXIS AGAINST TRANSPLANT REJECTION
     Dates: end: 20040720
  3. NEORAL [Suspect]
     Indication: PROPHYLAXIS AGAINST TRANSPLANT REJECTION
     Dates: start: 20040101, end: 20040727
  4. MYCOSTATIN (NYSTASTIN) [Concomitant]
  5. METAMUCIL-2 [Concomitant]
  6. QUINIDINE SULFATE [Concomitant]
  7. BACTRIM DS [Concomitant]
  8. NORVASC [Concomitant]
  9. CELLCEPT [Concomitant]

REACTIONS (5)
  - LYMPHOCELE [None]
  - RENAL FAILURE ACUTE [None]
  - RENAL TUBULAR DISORDER [None]
  - RENAL TUBULAR NECROSIS [None]
  - SEROMA [None]
